FAERS Safety Report 6926737-8 (Version None)
Quarter: 2010Q3

REPORT INFORMATION
  Report Type: 
  Country: None (occurrence: None)
  Receive Date: 20100816
  Receipt Date: 20100623
  Transmission Date: 20110219
  Serious: No
  Sender: FDA-Public Use
  Company Number: US-ABBOTT-10P-163-0653080-00

PATIENT
  Sex: Male
  Weight: 70.824 kg

DRUGS (4)
  1. SIMCOR [Suspect]
     Indication: HYPERLIPIDAEMIA
     Route: 048
     Dates: start: 20100622
  2. ASPIRIN [Concomitant]
     Indication: PRODUCT USED FOR UNKNOWN INDICATION
     Dosage: TAKEN AS DIRECTED
  3. HCTZ VYASTOLIC [Concomitant]
     Indication: PRODUCT USED FOR UNKNOWN INDICATION
     Dosage: TAKEN AS DIRECTED
  4. FISH OIL SUPPLEMENTS [Concomitant]
     Indication: PRODUCT USED FOR UNKNOWN INDICATION
     Dosage: TAKEN AS DIRECTED

REACTIONS (2)
  - ABDOMINAL PAIN UPPER [None]
  - DIZZINESS [None]
